FAERS Safety Report 10249467 (Version 1)
Quarter: 2014Q2

REPORT INFORMATION
  Report Type: Spontaneous
  Country: JP (occurrence: None)
  Receive Date: 20140618
  Receipt Date: 20140618
  Transmission Date: 20141212
  Serious: Yes (Other)
  Sender: FDA-Public Use
  Company Number: 2010JP004278

PATIENT
  Age: 72 Year
  Sex: Female

DRUGS (3)
  1. TACROLIMUS ( TACROLIMUS) FORMULATION UNKNOWN [Suspect]
     Indication: IMMUNOSUPPRESSION
     Dosage: UNK UNK UNKNOWN FREQ, UNKNOWN
  2. METHYLPREDNISOLONE ( METHYLPREDNISOLONE) INJECTION [Concomitant]
  3. PREDNISOLONE ( PREDNISOLONE) [Concomitant]

REACTIONS (1)
  - Renal disorder [None]
